FAERS Safety Report 8637342 (Version 2)
Quarter: 2012Q4

REPORT INFORMATION
  Report Type: Spontaneous
  Country: US (occurrence: None)
  Receive Date: 20120612
  Receipt Date: 20120822
  Transmission Date: 20130627
  Serious: Yes (Death)
  Sender: FDA-Public Use
  Company Number: TPA2012A03169

PATIENT
  Age: 63 Year
  Sex: Male
  Weight: 90.72 kg

DRUGS (4)
  1. ACTOS [Suspect]
     Indication: TYPE 2 DIABETES MELLITUS
     Dates: start: 20050412, end: 20110228
  2. METFORMIN (METFORMIN) [Concomitant]
  3. GLUCOPHAGE (METFORMIN) [Concomitant]
  4. INSULIN (INSULIN) [Concomitant]

REACTIONS (1)
  - Bladder cancer [None]
